FAERS Safety Report 12991952 (Version 2)
Quarter: 2016Q4

REPORT INFORMATION
  Report Type: Spontaneous
  Country: JP (occurrence: JP)
  Receive Date: 20161201
  Receipt Date: 20161219
  Transmission Date: 20170207
  Serious: Yes (Other)
  Sender: FDA-Public Use
  Company Number: JP-SA-2016SA218139

PATIENT
  Age: 55 Year
  Sex: Male

DRUGS (2)
  1. IMMUCYST [Suspect]
     Active Substance: BACILLUS CALMETTE-GUERIN SUBSTRAIN CONNAUGHT LIVE ANTIGEN
     Indication: TRANSITIONAL CELL CARCINOMA
     Route: 043
  2. IMMUCYST [Suspect]
     Active Substance: BACILLUS CALMETTE-GUERIN SUBSTRAIN CONNAUGHT LIVE ANTIGEN
     Indication: TRANSITIONAL CELL CARCINOMA
     Route: 043

REACTIONS (2)
  - Tuberculosis of genitourinary system [Unknown]
  - Balanoposthitis infective [Unknown]
